FAERS Safety Report 6046707-4 (Version None)
Quarter: 2009Q1

REPORT INFORMATION
  Report Type: 
  Country: None (occurrence: None)
  Receive Date: 20090122
  Receipt Date: 20090110
  Transmission Date: 20090719
  Serious: Yes (Hospitalization)
  Sender: FDA-Public Use
  Company Number: AU-PFIZER INC-2008100542

PATIENT

DRUGS (1)
  1. ZELDOX [Suspect]
     Dosage: 40 MG, 2X/DAY

REACTIONS (2)
  - NAUSEA [None]
  - NERVOUS SYSTEM DISORDER [None]
